FAERS Safety Report 5046418-8 (Version None)
Quarter: 2006Q3

REPORT INFORMATION
  Report Type: 
  Country: None (occurrence: None)
  Receive Date: 20060710
  Receipt Date: 20060627
  Transmission Date: 20061208
  Serious: Yes (Other)
  Sender: FDA-Public Use
  Company Number: US-ROCHE-453646

PATIENT
  Age: 23 Year
  Sex: Female

DRUGS (2)
  1. ACCUTANE [Suspect]
     Indication: DRUG USE FOR UNKNOWN INDICATION
     Dosage: DOSAGE REGIMEN REPORTED: DAILY.
     Route: 065
     Dates: start: 20060109, end: 20060427
  2. AMNESTEEM [Concomitant]
     Indication: ACNE

REACTIONS (3)
  - DRUG EXPOSURE BEFORE PREGNANCY [None]
  - NO ADVERSE EFFECT [None]
  - PREGNANCY [None]
